FAERS Safety Report 24878377 (Version 1)
Quarter: 2025Q1

REPORT INFORMATION
  Report Type: Spontaneous
  Country: CN (occurrence: CN)
  Receive Date: 20250123
  Receipt Date: 20250123
  Transmission Date: 20250409
  Serious: Yes (Life-Threatening)
  Sender: PFIZER
  Company Number: CN-PFIZER INC-PV202500007755

PATIENT
  Age: 56 Year
  Sex: Male
  Weight: 73 kg

DRUGS (1)
  1. CYTARABINE [Suspect]
     Active Substance: CYTARABINE
     Indication: Acute myeloid leukaemia
     Dosage: 2 G, 2X/DAY
     Route: 041
     Dates: start: 20241227, end: 20241229

REACTIONS (5)
  - Granulocyte count decreased [Recovered/Resolved]
  - Platelet count decreased [Recovering/Resolving]
  - White blood cell count decreased [Recovering/Resolving]
  - Pyrexia [Recovered/Resolved]
  - Infection [Unknown]

NARRATIVE: CASE EVENT DATE: 20241230
